FAERS Safety Report 4515418-6 (Version None)
Quarter: 2004Q4

REPORT INFORMATION
  Report Type: 
  Country: None (occurrence: None)
  Receive Date: 20041126
  Receipt Date: 20041112
  Transmission Date: 20050328
  Serious: Yes (Hospitalization)
  Sender: FDA-Public Use
  Company Number: 2004-11-0915

PATIENT
  Age: 47 Year
  Sex: Male
  Weight: 67 kg

DRUGS (10)
  1. PEG-INTERFERON INJECTABLE [Suspect]
     Indication: HEPATITIS C
  2. RIBAVIRIN [Suspect]
     Indication: HEPATITIS C
     Dosage: ORAL
     Route: 048
  3. ZIDOVUDINE [Suspect]
  4. PROCRIT [Suspect]
     Indication: ANAEMIA
     Dosage: 40,000 U SC W
     Route: 058
     Dates: start: 20020401, end: 20020925
  5. ABACAVIR [Concomitant]
  6. EFAVIRENZ [Concomitant]
  7. TENOFOVIR(PMPA) [Concomitant]
  8. LAMIVUDINE(3TC) [Concomitant]
  9. OXANDROLONE [Concomitant]
  10. TESTOSTERONE TOPICAL [Concomitant]

REACTIONS (2)
  - APLASIA PURE RED CELL [None]
  - DRUG INTERACTION [None]
